FAERS Safety Report 25037972 (Version 2)
Quarter: 2025Q1

REPORT INFORMATION
  Report Type: Spontaneous
  Country: US (occurrence: US)
  Receive Date: 20250304
  Receipt Date: 20250327
  Transmission Date: 20250409
  Serious: Yes (Other)
  Sender: MALLINCKRODT
  Company Number: US-MALLINCKRODT-MNK202501114

PATIENT
  Age: 57 Year
  Sex: Female
  Weight: 191 kg

DRUGS (3)
  1. CORTICOTROPIN [Suspect]
     Active Substance: CORTICOTROPIN
     Indication: Systemic lupus erythematosus
     Route: 058
     Dates: start: 202311, end: 202502
  2. BENLYSTA [Concomitant]
     Active Substance: BELIMUMAB
  3. INFLUENZA VIRUS VACCINE [Concomitant]
     Active Substance: INFLUENZA VIRUS VACCINE

REACTIONS (4)
  - Systemic lupus erythematosus [Unknown]
  - Stress [Unknown]
  - Blood pressure abnormal [Unknown]
  - Contraindicated product administered [Unknown]
